FAERS Safety Report 8762682 (Version 1)
Quarter: 2012Q4

REPORT INFORMATION
  Report Type: 
  Country: US (occurrence: US)
  Receive Date: 20120831
  Receipt Date: 20120831
  Transmission Date: 20130627
  Serious: No
  Sender: FDA-Public Use
  Company Number: US-B.I. PHARMACEUTICALS,INC./RIDGEFIELD-2012-BP-14766BP

PATIENT
  Age: 79 Year
  Sex: Male

DRUGS (5)
  1. SPIRIVA [Suspect]
     Indication: CHRONIC OBSTRUCTIVE PULMONARY DISEASE
     Dosage: 18 mcg
  2. FUROSEMIDE [Concomitant]
  3. SIMVASTATIN [Concomitant]
  4. BENAZEPRIL [Concomitant]
  5. CARVEDILOL [Concomitant]

REACTIONS (2)
  - Dizziness [Not Recovered/Not Resolved]
  - Product quality issue [Unknown]
